FAERS Safety Report 5830728-8 (Version None)
Quarter: 2008Q3

REPORT INFORMATION
  Report Type: 
  Country: None (occurrence: None)
  Receive Date: 20080801
  Receipt Date: 20071024
  Transmission Date: 20090109
  Serious: No
  Sender: FDA-Public Use
  Company Number: US-BRISTOL-MYERS SQUIBB COMPANY-13955216

PATIENT
  Age: 75 Year
  Sex: Female
  Weight: 65 kg

DRUGS (5)
  1. COUMADIN [Suspect]
     Indication: ATRIAL FIBRILLATION
     Dosage: 5MG TAB ON MON,WED + FRI AND 2.5MG TAB ON TUE,THUR, SAT + SUN.
     Route: 048
     Dates: start: 20070903
  2. COREG [Concomitant]
     Dates: end: 20071020
  3. ALTACE [Concomitant]
     Dates: start: 20071020
  4. PREVACID [Concomitant]
  5. HEPARIN [Concomitant]

REACTIONS (4)
  - DYSPEPSIA [None]
  - FATIGUE [None]
  - INTERNATIONAL NORMALISED RATIO DECREASED [None]
  - ODYNOPHAGIA [None]
